FAERS Safety Report 4746891-6 (Version None)
Quarter: 2005Q3

REPORT INFORMATION
  Report Type: 
  Country: None (occurrence: None)
  Receive Date: 20050815
  Receipt Date: 20050811
  Transmission Date: 20060218
  Serious: Yes (Hospitalization)
  Sender: FDA-Public Use
  Company Number: 2005US001078

PATIENT
  Age: 73 Year
  Sex: Female
  Weight: 92.5 kg

DRUGS (6)
  1. ADENOSCAN [Suspect]
     Indication: SCAN MYOCARDIAL PERFUSION
     Dosage: IV NOS
     Route: 042
     Dates: start: 20050804, end: 20050804
  2. COLACE (DOCUSATE SODIUM) [Concomitant]
  3. COMBIVENT (IPTRATROPIUM BROMIDE, SALBUTAMOL SULFATE) [Concomitant]
  4. OXYCODONE HCL [Concomitant]
  5. MOTRIN [Concomitant]
  6. DALMANE [Concomitant]

REACTIONS (1)
  - CHILLS [None]
